FAERS Safety Report 4399671-8 (Version None)
Quarter: 2004Q3

REPORT INFORMATION
  Report Type: 
  Country: None (occurrence: None)
  Receive Date: 20040716
  Receipt Date: 20040705
  Transmission Date: 20050211
  Serious: Yes (Hospitalization)
  Sender: FDA-Public Use
  Company Number: GB-ROCHE-373203

PATIENT
  Age: 16 Year

DRUGS (4)
  1. SAQUINAVIR FORMULATION UNKNOWN [Suspect]
     Indication: HIV INFECTION
     Route: 048
     Dates: start: 19970320
  2. EPIVIR [Suspect]
     Indication: HIV INFECTION
     Route: 048
     Dates: start: 19970108
  3. STAVUDINE [Suspect]
     Indication: HIV INFECTION
     Route: 048
     Dates: start: 19970108
  4. ZALCITABINE [Suspect]
     Indication: DRUG USE FOR UNKNOWN INDICATION
     Route: 065

REACTIONS (4)
  - CONVULSION [None]
  - HEMIPARESIS [None]
  - NEUTROPENIA [None]
  - SUBDURAL HAEMATOMA [None]
